FAERS Safety Report 4678385-0 (Version None)
Quarter: 2005Q2

REPORT INFORMATION
  Report Type: 
  Country: None (occurrence: None)
  Receive Date: 20050527
  Receipt Date: 20050517
  Transmission Date: 20051028
  Serious: Yes (Hospitalization)
  Sender: FDA-Public Use
  Company Number: MK200505-0216-1

PATIENT
  Age: 78 Year
  Sex: Male

DRUGS (5)
  1. OPTIRAY 160 [Suspect]
     Indication: STENT PLACEMENT
     Dosage: 150 ML, ONE TIME, IA
     Route: 013
     Dates: start: 20041026, end: 20041026
  2. NITROGLYCERIN [Concomitant]
  3. CEREBYX [Concomitant]
  4. ATIVAN [Concomitant]
  5. MANNITOL [Concomitant]

REACTIONS (5)
  - BRAIN OEDEMA [None]
  - CONFUSIONAL STATE [None]
  - CONVULSION [None]
  - HEMIPARESIS [None]
  - POST PROCEDURAL COMPLICATION [None]
